FAERS Safety Report 8962063 (Version 1)
Quarter: 2012Q4

REPORT INFORMATION
  Report Type: 
  Country: US (occurrence: US)
  Receive Date: 20121212
  Receipt Date: 20121212
  Transmission Date: 20130627
  Serious: No
  Sender: FDA-Public Use
  Company Number: US-PFIZER INC-2012313369

PATIENT
  Age: 68 Year
  Sex: Female
  Weight: 55.33 kg

DRUGS (2)
  1. LYRICA [Suspect]
     Indication: CIDP
     Dosage: 50 mg, daily
  2. LYRICA [Suspect]
     Dosage: UNK

REACTIONS (3)
  - Oral pain [Unknown]
  - Oral discomfort [Unknown]
  - Pain in extremity [Unknown]
